FAERS Safety Report 6286171-3 (Version None)
Quarter: 2009Q3

REPORT INFORMATION
  Report Type: 
  Country: None (occurrence: None)
  Receive Date: 20090716
  Receipt Date: 20090423
  Transmission Date: 20100115
  Serious: Yes (Hospitalization, Other)
  Sender: FDA-Public Use
  Company Number: 2009BI010879

PATIENT
  Sex: Female

DRUGS (3)
  1. AVONEX [Suspect]
     Indication: MULTIPLE SCLEROSIS
     Dosage: 30 UG;QW;IM
     Route: 030
     Dates: start: 20090320
  2. IMITREX [Concomitant]
  3. PREV MEDS [Concomitant]

REACTIONS (6)
  - ALOPECIA [None]
  - AMNESIA [None]
  - GRAND MAL CONVULSION [None]
  - SKIN MASS [None]
  - STOMATITIS [None]
  - SUICIDE ATTEMPT [None]
